FAERS Safety Report 25787636 (Version 1)
Quarter: 2025Q3

REPORT INFORMATION
  Report Type: Spontaneous
  Country: US (occurrence: US)
  Receive Date: 20250910
  Receipt Date: 20250910
  Transmission Date: 20251021
  Serious: No
  Sender: ELI LILLY AND COMPANY
  Company Number: US-ELI_LILLY_AND_COMPANY-US202509004563

PATIENT
  Age: 64 Year
  Sex: Male

DRUGS (5)
  1. MOUNJARO [Suspect]
     Active Substance: TIRZEPATIDE
     Indication: Diabetes mellitus
     Route: 065
     Dates: start: 20250816
  2. MOUNJARO [Suspect]
     Active Substance: TIRZEPATIDE
     Indication: Diabetes mellitus
     Route: 065
     Dates: start: 20250816
  3. MOUNJARO [Suspect]
     Active Substance: TIRZEPATIDE
     Indication: Diabetes mellitus
     Route: 065
     Dates: start: 20250816
  4. MOUNJARO [Suspect]
     Active Substance: TIRZEPATIDE
     Indication: Diabetes mellitus
     Route: 065
     Dates: start: 20250816
  5. METFORMIN [Concomitant]
     Active Substance: METFORMIN HYDROCHLORIDE
     Indication: Diabetes mellitus

REACTIONS (1)
  - Incorrect dose administered [Unknown]

NARRATIVE: CASE EVENT DATE: 20250830
